FAERS Safety Report 16008121 (Version 1)
Quarter: 2019Q1

REPORT INFORMATION
  Report Type: Spontaneous
  Country: NO (occurrence: NO)
  Receive Date: 20190224
  Receipt Date: 20190224
  Transmission Date: 20190418
  Serious: Yes (Hospitalization)
  Sender: FDA-Public Use
  Company Number: PHHY2019NO040346

PATIENT
  Age: 15 Year
  Sex: Female
  Weight: 46.5 kg

DRUGS (3)
  1. DIVISUN [Concomitant]
     Indication: VITAMIN D DEFICIENCY
     Dosage: 800 IU, QD
     Route: 048
     Dates: start: 201812
  2. TRILEPTAL [Suspect]
     Active Substance: OXCARBAZEPINE
     Indication: EPILEPSY
     Dosage: UNK
     Route: 048
     Dates: start: 2013, end: 20181211
  3. TRILEPTAL [Suspect]
     Active Substance: OXCARBAZEPINE
     Dosage: 300 MG, Q12H
     Route: 048
     Dates: start: 20181211

REACTIONS (5)
  - Renal failure [Not Recovered/Not Resolved]
  - Proteinuria [Not Recovered/Not Resolved]
  - Renal hypertension [Not Recovered/Not Resolved]
  - Focal segmental glomerulosclerosis [Not Recovered/Not Resolved]
  - Retinopathy hypertensive [Not Recovered/Not Resolved]

NARRATIVE: CASE EVENT DATE: 20190107
